FAERS Safety Report 15996278 (Version 2)
Quarter: 2019Q1

REPORT INFORMATION
  Report Type: Report from Study
  Country: US (occurrence: US)
  Receive Date: 20190222
  Receipt Date: 20190305
  Transmission Date: 20190418
  Serious: Yes (Hospitalization)
  Sender: FDA-Public Use
  Company Number: US-ACTELION-A-NJ2019-186664

PATIENT
  Age: 2 Year
  Sex: Female
  Weight: 5.44 kg

DRUGS (3)
  1. TRACLEER [Suspect]
     Active Substance: BOSENTAN
     Dosage: 15.6 MG, BID
     Route: 048
     Dates: start: 201610
  2. TRACLEER [Suspect]
     Active Substance: BOSENTAN
     Indication: PULMONARY HYPERTENSION
     Dosage: 31.25 MG, BID
     Route: 048
  3. REVATIO [Concomitant]
     Active Substance: SILDENAFIL CITRATE
     Dosage: 12 MG, TID
     Dates: start: 201603

REACTIONS (2)
  - Catheterisation cardiac [Recovering/Resolving]
  - Vascular stent insertion [Recovering/Resolving]

NARRATIVE: CASE EVENT DATE: 20190204
